FAERS Safety Report 9346985 (Version 1)
Quarter: 2013Q2

REPORT INFORMATION
  Report Type: Spontaneous
  Country: IT (occurrence: IT)
  Receive Date: 20130613
  Receipt Date: 20130621
  Transmission Date: 20140414
  Serious: Yes (Hospitalization)
  Sender: FDA-Public Use
  Company Number: IT-BAYER-2013-072015

PATIENT
  Age: 27 Year
  Sex: Male

DRUGS (3)
  1. LASONIL GEL CM [Suspect]
     Indication: MUSCLE TWITCHING
     Dosage: DAILY DOSE 1 DF
     Route: 061
     Dates: start: 20130422, end: 20130425
  2. TETRAMIL [Concomitant]
     Indication: CONJUNCTIVITIS ALLERGIC
     Dosage: UNK
  3. ACECLOFENAC [Suspect]
     Indication: MUSCLE TWITCHING
     Dosage: DAILY DOSE 200 MG
     Dates: start: 20130422, end: 20130422

REACTIONS (5)
  - Pruritus [Recovered/Resolved]
  - Paraesthesia [Recovered/Resolved]
  - Paraesthesia oral [Recovered/Resolved]
  - Adverse drug reaction [Recovered/Resolved]
  - Erythema [Recovered/Resolved]
